FAERS Safety Report 9600444 (Version 1)
Quarter: 2013Q4

REPORT INFORMATION
  Report Type: Spontaneous
  Country: US (occurrence: US)
  Receive Date: 20131004
  Receipt Date: 20131004
  Transmission Date: 20140711
  Serious: No
  Sender: FDA-Public Use
  Company Number: US-AMGEN-USASP2013035133

PATIENT
  Age: 43 Year
  Sex: Female
  Weight: 77 kg

DRUGS (6)
  1. ENBREL [Suspect]
     Indication: PRODUCT USED FOR UNKNOWN INDICATION
     Dosage: 50 MG, QWK
     Route: 058
  2. HUMALOG [Concomitant]
     Dosage: UNK
  3. COREG CR [Concomitant]
     Dosage: 10 MG, UNK
  4. PROTONIX [Concomitant]
     Dosage: UNK
  5. LANTUS [Concomitant]
     Dosage: UNK
  6. SIMVASTATIN [Concomitant]
     Dosage: 5 MG, UNK

REACTIONS (1)
  - Drug effect decreased [Unknown]
